FAERS Safety Report 4926168-6 (Version None)
Quarter: 2006Q1

REPORT INFORMATION
  Report Type: 
  Country: None (occurrence: None)
  Receive Date: 20060228
  Receipt Date: 20050824
  Transmission Date: 20060701
  Serious: Yes (Hospitalization)
  Sender: FDA-Public Use
  Company Number: US-GLAXOSMITHKLINE-A0572757A

PATIENT
  Age: 42 Year
  Sex: Female
  Weight: 68.2 kg

DRUGS (2)
  1. LAMICTAL [Suspect]
     Indication: DRUG USE FOR UNKNOWN INDICATION
     Dosage: 200MG AT NIGHT
     Route: 048
     Dates: start: 20050201, end: 20050401
  2. PROZAC [Concomitant]
     Route: 048

REACTIONS (3)
  - CONVERSION DISORDER [None]
  - INFLUENZA [None]
  - ORAL INTAKE REDUCED [None]
